FAERS Safety Report 7605946-9 (Version None)
Quarter: 2011Q3

REPORT INFORMATION
  Report Type: 
  Country: None (occurrence: None)
  Receive Date: 20110712
  Receipt Date: 20110712
  Transmission Date: 20111222
  Serious: Yes (Hospitalization)
  Sender: FDA-Public Use
  Company Number: None

PATIENT
  Age: 77 Year
  Sex: Female
  Weight: 88 kg

DRUGS (1)
  1. NUBAIN [Suspect]
     Indication: PAIN
     Dosage: 10 MG ONCE IV
     Route: 042

REACTIONS (4)
  - AGGRESSION [None]
  - AGITATION [None]
  - NO THERAPEUTIC RESPONSE [None]
  - MUSCLE RIGIDITY [None]
